FAERS Safety Report 9377690 (Version 2)
Quarter: 2013Q3

REPORT INFORMATION
  Report Type: Spontaneous
  Country: US (occurrence: US)
  Receive Date: 20130701
  Receipt Date: 20130711
  Transmission Date: 20140515
  Serious: Yes (Hospitalization)
  Sender: FDA-Public Use
  Company Number: US-BRISTOL-MYERS SQUIBB COMPANY-19039049

PATIENT
  Age: 41 Year
  Sex: Female
  Weight: 62.13 kg

DRUGS (4)
  1. BYETTA [Suspect]
     Indication: TYPE 2 DIABETES MELLITUS
     Route: 058
     Dates: start: 20110603
  2. PLAQUENIL [Concomitant]
  3. LORAZEPAM [Concomitant]
  4. ADDERALL [Concomitant]

REACTIONS (2)
  - Multiple sclerosis [Recovered/Resolved]
  - Blood glucose increased [Unknown]
